FAERS Safety Report 16653076 (Version 3)
Quarter: 2022Q3

REPORT INFORMATION
  Report Type: Spontaneous
  Country: US (occurrence: None)
  Receive Date: 20190731
  Receipt Date: 20220713
  Transmission Date: 20221027
  Serious: Yes (Other)
  Sender: FDA-Public Use
  Company Number: 2019SF06251

PATIENT
  Age: 62 Year
  Sex: Female
  Weight: 72.6 kg

DRUGS (45)
  1. NEXIUM [Suspect]
     Active Substance: ESOMEPRAZOLE MAGNESIUM
     Indication: Gastrooesophageal reflux disease
     Route: 048
     Dates: start: 2008, end: 2018
  2. NEXIUM [Suspect]
     Active Substance: ESOMEPRAZOLE MAGNESIUM
     Indication: Gastrooesophageal reflux disease
     Route: 048
     Dates: start: 200806
  3. NEXIUM [Suspect]
     Active Substance: ESOMEPRAZOLE MAGNESIUM
     Indication: Gastrooesophageal reflux disease
     Route: 048
     Dates: start: 200807, end: 200809
  4. NEXIUM [Suspect]
     Active Substance: ESOMEPRAZOLE MAGNESIUM
     Indication: Gastrooesophageal reflux disease
     Route: 048
     Dates: start: 200810, end: 200901
  5. NEXIUM [Suspect]
     Active Substance: ESOMEPRAZOLE MAGNESIUM
     Indication: Gastrooesophageal reflux disease
     Route: 048
     Dates: start: 201107, end: 201205
  6. NEXIUM [Suspect]
     Active Substance: ESOMEPRAZOLE MAGNESIUM
     Indication: Gastrooesophageal reflux disease
     Route: 048
     Dates: start: 201209
  7. NEXIUM [Suspect]
     Active Substance: ESOMEPRAZOLE MAGNESIUM
     Indication: Gastrooesophageal reflux disease
     Route: 048
     Dates: start: 201210, end: 201301
  8. NEXIUM [Suspect]
     Active Substance: ESOMEPRAZOLE MAGNESIUM
     Indication: Gastrooesophageal reflux disease
     Route: 048
     Dates: start: 20120221
  9. OMEPRAZOLE [Suspect]
     Active Substance: OMEPRAZOLE
     Indication: Gastrooesophageal reflux disease
     Route: 065
     Dates: start: 200903, end: 200905
  10. OMEPRAZOLE [Suspect]
     Active Substance: OMEPRAZOLE
     Indication: Gastrooesophageal reflux disease
     Route: 065
     Dates: start: 201210, end: 201301
  11. OMEPRAZOLE [Suspect]
     Active Substance: OMEPRAZOLE
     Indication: Gastrooesophageal reflux disease
     Route: 065
     Dates: start: 20121018
  12. OMEPRAZOLE [Suspect]
     Active Substance: OMEPRAZOLE
     Indication: Gastrooesophageal reflux disease
     Route: 065
     Dates: start: 20080523
  13. DEXILANT [Suspect]
     Active Substance: DEXLANSOPRAZOLE
     Indication: Gastrooesophageal reflux disease
     Route: 065
     Dates: start: 2008, end: 2018
  14. DEXILANT [Suspect]
     Active Substance: DEXLANSOPRAZOLE
     Indication: Gastrooesophageal reflux disease
     Route: 065
     Dates: start: 20171003
  15. PANTOPRAZOLE [Suspect]
     Active Substance: PANTOPRAZOLE
     Indication: Gastrooesophageal reflux disease
     Route: 065
     Dates: start: 201305, end: 201411
  16. PANTOPRAZOLE [Suspect]
     Active Substance: PANTOPRAZOLE
     Indication: Gastrooesophageal reflux disease
     Route: 065
     Dates: start: 201506, end: 201509
  17. PANTOPRAZOLE [Suspect]
     Active Substance: PANTOPRAZOLE
     Indication: Gastrooesophageal reflux disease
     Route: 065
     Dates: start: 201509, end: 201601
  18. PANTOPRAZOLE [Suspect]
     Active Substance: PANTOPRAZOLE
     Indication: Gastrooesophageal reflux disease
     Route: 065
     Dates: start: 201607, end: 201712
  19. PANTOPRAZOLE [Suspect]
     Active Substance: PANTOPRAZOLE
     Indication: Gastrooesophageal reflux disease
     Route: 065
     Dates: start: 201804, end: 201808
  20. PANTOPRAZOLE [Suspect]
     Active Substance: PANTOPRAZOLE
     Indication: Gastrooesophageal reflux disease
     Route: 065
     Dates: start: 201809
  21. PANTOPRAZOLE [Suspect]
     Active Substance: PANTOPRAZOLE
     Indication: Gastrooesophageal reflux disease
     Route: 065
     Dates: start: 20170321
  22. METOPROLOL [Concomitant]
     Active Substance: METOPROLOL
     Indication: Cardiac disorder
     Route: 065
     Dates: start: 2008
  23. LIPITOR [Concomitant]
     Active Substance: ATORVASTATIN CALCIUM
     Indication: Blood cholesterol
     Route: 065
     Dates: start: 1995
  24. WARFARIN [Concomitant]
     Active Substance: WARFARIN
     Indication: Anticoagulant therapy
     Route: 065
     Dates: start: 2008
  25. LOSARTAN [Concomitant]
     Active Substance: LOSARTAN
     Indication: Hypertension
     Route: 065
     Dates: start: 2011
  26. HYDROCHLOROTHIAZIDE\TRIAMTERENE [Concomitant]
     Active Substance: HYDROCHLOROTHIAZIDE\TRIAMTERENE
     Indication: Hypertension
     Route: 065
     Dates: start: 2007
  27. VITAMINS [Concomitant]
     Active Substance: VITAMINS
     Route: 065
     Dates: start: 2014
  28. BLACK COHOSH [Concomitant]
     Active Substance: BLACK COHOSH
     Indication: Hot flush
     Route: 065
     Dates: start: 2004
  29. RANITIDINE [Concomitant]
     Active Substance: RANITIDINE
     Route: 065
     Dates: start: 200809, end: 201201
  30. RANITIDINE [Concomitant]
     Active Substance: RANITIDINE
     Route: 065
     Dates: start: 201010, end: 201908
  31. CLONAZEPAM [Concomitant]
     Active Substance: CLONAZEPAM
     Indication: Anxiety
     Route: 065
     Dates: start: 2009
  32. BUPROPION [Concomitant]
     Active Substance: BUPROPION
     Indication: Mental disorder
     Route: 065
     Dates: start: 2012
  33. FLUOXETINE [Concomitant]
     Active Substance: FLUOXETINE HYDROCHLORIDE
     Indication: Mental disorder
     Route: 065
     Dates: start: 2007, end: 2018
  34. ENOXAPARIN [Concomitant]
     Active Substance: ENOXAPARIN
     Indication: Anticoagulant therapy
     Route: 065
     Dates: start: 2012, end: 2018
  35. POTASSIUM [Concomitant]
     Active Substance: POTASSIUM
     Indication: Supplementation therapy
     Route: 065
     Dates: start: 2008
  36. TIZANIDINE [Concomitant]
     Active Substance: TIZANIDINE
     Indication: Pain
     Route: 065
     Dates: start: 2012
  37. FLUTICASONE [Concomitant]
     Active Substance: FLUTICASONE
  38. GABAPENTIN [Concomitant]
     Active Substance: GABAPENTIN
  39. ASTELIN [Concomitant]
     Active Substance: AZELASTINE HYDROCHLORIDE
     Dates: start: 20150127
  40. KENALOG [Concomitant]
     Active Substance: TRIAMCINOLONE ACETONIDE
     Dates: start: 20150417
  41. KEFLEX [Concomitant]
     Active Substance: CEPHALEXIN
     Dates: start: 20150417
  42. TOPROL XL [Concomitant]
     Active Substance: METOPROLOL SUCCINATE
     Dates: start: 20150417
  43. BENZONATATE [Concomitant]
     Active Substance: BENZONATATE
     Dates: start: 20150417
  44. COLACE [Concomitant]
     Active Substance: DOCUSATE SODIUM
     Dates: start: 20161208
  45. FLONASE [Concomitant]
     Active Substance: FLUTICASONE PROPIONATE
     Dates: start: 20150417

REACTIONS (4)
  - Chronic kidney disease [Not Recovered/Not Resolved]
  - Renal failure [Not Recovered/Not Resolved]
  - Acute kidney injury [Unknown]
  - Nephrogenic anaemia [Unknown]

NARRATIVE: CASE EVENT DATE: 20160101
